FAERS Safety Report 9271456 (Version 1)
Quarter: 2013Q2

REPORT INFORMATION
  Report Type: Spontaneous
  Country: US (occurrence: US)
  Receive Date: 20130506
  Receipt Date: 20130506
  Transmission Date: 20140414
  Serious: Yes (Hospitalization)
  Sender: FDA-Public Use
  Company Number: US-COVIDIEN/TYCO HEALTHCARE/MALLINCKRODT-T201301772

PATIENT
  Age: 30 Year
  Sex: Male

DRUGS (2)
  1. GABLOFEN [Suspect]
     Dosage: 761 MCG/DAY
     Route: 037
     Dates: end: 201301
  2. GABLOFEN [Suspect]
     Dosage: 570.7 MCG/DAY
     Route: 037
     Dates: start: 201301

REACTIONS (3)
  - Coma [Unknown]
  - Urinary tract infection [Unknown]
  - Muscle spasticity [Unknown]
